FAERS Safety Report 6232684-X (Version None)
Quarter: 2009Q2

REPORT INFORMATION
  Report Type: 
  Country: None (occurrence: None)
  Receive Date: 20090612
  Receipt Date: 20090612
  Transmission Date: 20091009
  Serious: Yes (Death, Hospitalization)
  Sender: FDA-Public Use
  Company Number: None

PATIENT
  Age: 51 Year
  Sex: Male
  Weight: 89 kg

DRUGS (1)
  1. TEMODAR [Suspect]
     Indication: ASTROCYTOMA

REACTIONS (2)
  - ENCEPHALITIS HERPES [None]
  - IMMUNE SYSTEM DISORDER [None]
